FAERS Safety Report 25660653 (Version 1)
Quarter: 2025Q3

REPORT INFORMATION
  Report Type: Spontaneous
  Country: CN (occurrence: CN)
  Receive Date: 20250808
  Receipt Date: 20250808
  Transmission Date: 20251021
  Serious: Yes (Other)
  Sender: NOVARTIS
  Company Number: CN-002147023-NVSC2025CN123051

PATIENT
  Age: 27 Year
  Sex: Female
  Weight: 96 kg

DRUGS (2)
  1. CYCLOSPORINE [Suspect]
     Active Substance: CYCLOSPORINE
     Indication: Neoplasm malignant
     Dosage: 125.000 MG, BID (Q12H)
     Route: 048
     Dates: start: 20250629, end: 20250707
  2. CYCLOSPORINE [Suspect]
     Active Substance: CYCLOSPORINE
     Dosage: 50 MG, Q12H
     Route: 048

REACTIONS (3)
  - Acute kidney injury [Unknown]
  - Blood creatinine increased [Recovering/Resolving]
  - Glomerular filtration rate decreased [Unknown]

NARRATIVE: CASE EVENT DATE: 20250707
